FAERS Safety Report 21522024 (Version 1)
Quarter: 2022Q4

REPORT INFORMATION
  Report Type: Spontaneous
  Country: US (occurrence: US)
  Receive Date: 20221028
  Receipt Date: 20221028
  Transmission Date: 20230113
  Serious: Yes (Other)
  Sender: FDA-Public Use
  Company Number: US-009507513-2210USA007594

PATIENT
  Age: 28 Year
  Sex: Male

DRUGS (2)
  1. REBETOL [Suspect]
     Active Substance: RIBAVIRIN
     Indication: Hepatitis C
  2. INTRON A [Suspect]
     Active Substance: INTERFERON ALFA-2B
     Indication: Hepatitis C

REACTIONS (2)
  - Thrombocytopenia [Not Recovered/Not Resolved]
  - Haematotoxicity [Not Recovered/Not Resolved]
